FAERS Safety Report 5103778-7 (Version None)
Quarter: 2006Q3

REPORT INFORMATION
  Report Type: 
  Country: None (occurrence: None)
  Receive Date: 20060913
  Receipt Date: 20060615
  Transmission Date: 20061208
  Serious: Yes (Life-Threatening, Other)
  Sender: FDA-Public Use
  Company Number: US-MERCK-0606USA02856

PATIENT
  Age: 68 Year
  Sex: Female
  Weight: 57 kg

DRUGS (6)
  1. CARDIZEM [Concomitant]
     Route: 048
  2. FOSAMAX [Suspect]
     Indication: OSTEOPOROSIS
     Route: 048
     Dates: start: 20060509, end: 20060520
  3. ISOSORBIDE MONONITRATE [Concomitant]
     Route: 048
  4. LISINOPRIL [Concomitant]
     Route: 048
  5. LOVASTATIN [Concomitant]
     Route: 048
  6. ZETIA [Concomitant]
     Route: 048

REACTIONS (3)
  - DERMATITIS [None]
  - EXFOLIATIVE RASH [None]
  - SERUM SICKNESS [None]
